FAERS Safety Report 20354965 (Version 1)
Quarter: 2022Q1

REPORT INFORMATION
  Report Type: Spontaneous
  Country: US (occurrence: None)
  Receive Date: 20220119
  Receipt Date: 20220119
  Transmission Date: 20220423
  Serious: Yes (unspecified)
  Sender: FDA-Public Use
  Company Number: None

PATIENT
  Age: 35 Year
  Sex: Male

DRUGS (6)
  1. CASIRIVIMAB\IMDEVIMAB [Suspect]
     Active Substance: CASIRIVIMAB\IMDEVIMAB
     Indication: COVID-19
     Dosage: FREQUENCY : ONCE;?
     Route: 058
     Dates: start: 20220105, end: 20220105
  2. ascorbate calcium (vitamin C) [Concomitant]
  3. cholecalciferol (vitamin D3) [Concomitant]
  4. MAGNESIUM [Concomitant]
  5. POTASSIUM CHLORIDE [Concomitant]
  6. PROPRANOLOL [Concomitant]
     Active Substance: PROPRANOLOL HYDROCHLORIDE

REACTIONS (3)
  - Dizziness [None]
  - Flushing [None]
  - Presyncope [None]

NARRATIVE: CASE EVENT DATE: 20220105
